FAERS Safety Report 4849332-3 (Version None)
Quarter: 2005Q4

REPORT INFORMATION
  Report Type: 
  Country: None (occurrence: None)
  Receive Date: 20051209
  Receipt Date: 20051125
  Transmission Date: 20060501
  Serious: Yes (Hospitalization)
  Sender: FDA-Public Use
  Company Number: HQWYE727329NOV05

PATIENT
  Sex: Female

DRUGS (3)
  1. ENBREL [Suspect]
     Indication: RHEUMATOID ARTHRITIS
     Route: 058
     Dates: start: 20050725
  2. SOMAC [Concomitant]
     Indication: GASTRIC ULCER
     Dosage: UNKNOWN
     Route: 048
  3. ENDONE [Concomitant]
     Indication: RHEUMATOID ARTHRITIS
     Dosage: UNKNOWN
     Route: 048

REACTIONS (2)
  - ACTINIC KERATOSIS [None]
  - DRUG EFFECT DECREASED [None]
